FAERS Safety Report 10040119 (Version 2)
Quarter: 2014Q2

REPORT INFORMATION
  Report Type: Report from Study
  Country: US (occurrence: US)
  Receive Date: 20140326
  Receipt Date: 20140404
  Transmission Date: 20141212
  Serious: Yes (Other)
  Sender: FDA-Public Use
  Company Number: US-CELGENEUS-163-21880-14032094

PATIENT
  Age: 67 Year
  Sex: Male
  Weight: 70.8 kg

DRUGS (14)
  1. REVLIMID [Suspect]
     Indication: CHRONIC LYMPHOCYTIC LEUKAEMIA
     Dosage: 10 MILLIGRAM
     Route: 048
     Dates: start: 20121127
  2. REVLIMID [Suspect]
     Dosage: 10 MILLIGRAM
     Route: 048
     Dates: start: 20130425, end: 20130515
  3. FLUDARABINE [Suspect]
     Indication: CHRONIC LYMPHOCYTIC LEUKAEMIA
     Route: 041
     Dates: start: 20120305
  4. FLUDARABINE [Suspect]
     Route: 048
     Dates: start: 20120305
  5. FLUDARABINE [Suspect]
     Dosage: 20-25MG/M2
     Route: 041
     Dates: start: 2012, end: 20120725
  6. FLUDARABINE [Suspect]
     Dosage: 32-40 MG/M2
     Route: 048
     Dates: start: 2012, end: 20120725
  7. CYCLOPHOSPHAMIDE [Suspect]
     Indication: CHRONIC LYMPHOCYTIC LEUKAEMIA
     Dosage: 150-250 MG/M2/DAY
     Route: 041
     Dates: end: 20120725
  8. RITUXIMAB [Suspect]
     Indication: CHRONIC LYMPHOCYTIC LEUKAEMIA
     Route: 041
     Dates: start: 20120305
  9. RITUXIMAB [Suspect]
     Route: 041
     Dates: start: 201203
  10. RITUXIMAB [Suspect]
     Route: 041
     Dates: start: 201203
  11. RITUXIMAB [Suspect]
     Route: 041
     Dates: start: 2012, end: 20120723
  12. AMOXICLAV [Concomitant]
     Indication: PNEUMONIA
     Route: 065
     Dates: start: 20140204, end: 2014
  13. HYDROMORPHONE [Concomitant]
     Indication: PRODUCT USED FOR UNKNOWN INDICATION
     Route: 065
  14. LIPITOR [Concomitant]
     Indication: PRODUCT USED FOR UNKNOWN INDICATION
     Route: 065

REACTIONS (1)
  - Lung adenocarcinoma [Not Recovered/Not Resolved]
